FAERS Safety Report 9732267 (Version 1)
Quarter: 2013Q4

REPORT INFORMATION
  Report Type: Spontaneous
  Country: US (occurrence: US)
  Receive Date: 20131204
  Receipt Date: 20131204
  Transmission Date: 20140711
  Serious: No
  Sender: FDA-Public Use
  Company Number: US-BAYER-2013-148000

PATIENT
  Sex: Female

DRUGS (2)
  1. ALEVE CAPLET [Suspect]
     Route: 048
  2. ALEVE CAPLET [Suspect]
     Dosage: 2 DF, UNK
     Route: 048
     Dates: start: 20131130

REACTIONS (1)
  - Blood pressure increased [None]
